FAERS Safety Report 23654744 (Version 2)
Quarter: 2024Q1

REPORT INFORMATION
  Report Type: Report from Study
  Country: US (occurrence: US)
  Receive Date: 20240320
  Receipt Date: 20240325
  Transmission Date: 20240410
  Serious: Yes (Other)
  Sender: FDA-Public Use
  Company Number: US-ORGANON-O2403USA001882

PATIENT
  Sex: Female
  Weight: 107.31 kg

DRUGS (3)
  1. IMPLANON [Suspect]
     Active Substance: ETONOGESTREL
     Indication: Contraception
     Dosage: 1 IMPLANT IN LEFT ARM ONCE EVERY THREE YEARS
     Route: 059
     Dates: start: 2021, end: 20240312
  2. BUSPIRONE [Concomitant]
     Active Substance: BUSPIRONE HYDROCHLORIDE
  3. CITALOPRAM [Concomitant]
     Active Substance: CITALOPRAM\CITALOPRAM HYDROBROMIDE

REACTIONS (3)
  - Device expulsion [Recovered/Resolved]
  - Implant site cyst [Recovered/Resolved]
  - Implant site cellulitis [Unknown]

NARRATIVE: CASE EVENT DATE: 20240101
